FAERS Safety Report 4449987-1 (Version None)
Quarter: 2004Q3

REPORT INFORMATION
  Report Type: 
  Country: None (occurrence: None)
  Receive Date: 20040915
  Receipt Date: 20040901
  Transmission Date: 20050211
  Serious: Yes (Other)
  Sender: FDA-Public Use
  Company Number: PHEH2004US09491

PATIENT
  Age: 20 Year
  Sex: Female

DRUGS (1)
  1. ZELNORM [Suspect]
     Indication: IRRITABLE BOWEL SYNDROME
     Dosage: 6 MG, BID
     Route: 048

REACTIONS (6)
  - COLITIS [None]
  - COLITIS EROSIVE [None]
  - DIARRHOEA [None]
  - ILEAL ULCER [None]
  - ILEITIS [None]
  - PROCTITIS [None]
